FAERS Safety Report 7385177-0 (Version None)
Quarter: 2011Q1

REPORT INFORMATION
  Report Type: 
  Country: None (occurrence: None)
  Receive Date: 20110330
  Receipt Date: 20110124
  Transmission Date: 20110831
  Serious: Yes (Other)
  Sender: FDA-Public Use
  Company Number: US-AMGEN-USASP2011004226

PATIENT
  Age: 61 Year
  Sex: Male

DRUGS (12)
  1. FOLIC ACID [Concomitant]
     Dosage: UNK
  2. METHOTREXATE [Concomitant]
     Dosage: UNK
  3. CYMBALTA [Concomitant]
  4. METHADONE [Concomitant]
  5. LIPITOR [Concomitant]
     Dosage: UNK
  6. SINGULAIR [Concomitant]
  7. OMEPRAZOLE [Concomitant]
  8. AMLODIPINE [Concomitant]
  9. LEVOTHYROXINE SODIUM [Concomitant]
  10. ENBREL [Suspect]
     Indication: RHEUMATOID ARTHRITIS
     Dosage: 50 MG, QWK
     Route: 058
     Dates: start: 20090101
  11. NIACIN [Concomitant]
  12. BISOPROLOL FUMARATE AND HYDROCHLOROTHIAZIDE [Concomitant]

REACTIONS (1)
  - HYPOAESTHESIA [None]
